FAERS Safety Report 10283357 (Version 2)
Quarter: 2014Q3

REPORT INFORMATION
  Report Type: Spontaneous
  Country: US (occurrence: None)
  Receive Date: 20140702
  Receipt Date: 20140708
  Transmission Date: 20150326
  Serious: Yes (Hospitalization)
  Sender: FDA-Public Use
  Company Number: AUR-APL-2014-06162

PATIENT
  Age: 66 Year
  Sex: Female

DRUGS (15)
  1. KETOROLAC (KETOROLAC) [Suspect]
     Active Substance: KETOROLAC TROMETHAMINE
     Indication: NECK PAIN
     Route: 030
  2. LEVOTHYROXINE (LEVOTHYROXINE) [Concomitant]
     Active Substance: LEVOTHYROXINE
  3. CARVEDILOL (CARVEDILOL) [Concomitant]
     Active Substance: CARVEDILOL
  4. SEROQUEL [Concomitant]
     Active Substance: QUETIAPINE FUMARATE
  5. GABAPENTIN (GABAPENTIN) [Concomitant]
     Active Substance: GABAPENTIN
  6. ATORVASTATIN (ATORVASTATIN) [Concomitant]
     Active Substance: ATORVASTATIN
  7. DOCUSATE (DOCUSATE) [Concomitant]
     Active Substance: DOCUSATE
  8. FISH OIL (FISH OIL) [Suspect]
     Active Substance: FISH OIL
     Indication: PRODUCT USED FOR UNKNOWN INDICATION
  9. VITAMIN E [Suspect]
     Active Substance: .ALPHA.-TOCOPHEROL
     Indication: PRODUCT USED FOR UNKNOWN INDICATION
  10. CARISOPRODOL (CARISOPRODOL) [Concomitant]
     Active Substance: CARISOPRODOL
  11. FLUOXETINE [Suspect]
     Active Substance: FLUOXETINE\FLUOXETINE HYDROCHLORIDE
     Indication: PRODUCT USED FOR UNKNOWN INDICATION
     Route: 048
  12. FERROUS SULFATE [Concomitant]
     Active Substance: FERROUS SULFATE\FERROUS SULFATE, DRIED
  13. KETOROLAC (KETOROLAC) [Suspect]
     Active Substance: KETOROLAC TROMETHAMINE
     Indication: MUSCLE SPASMS
     Route: 030
  14. FENTANYL (FENTANYL) [Concomitant]
     Active Substance: FENTANYL
  15. OMEPRAZOLE (OMEPRAZOLE) [Concomitant]
     Active Substance: OMEPRAZOLE

REACTIONS (7)
  - Rectal examination abnormal [None]
  - Hypoaesthesia [None]
  - Unresponsive to stimuli [None]
  - Quadriplegia [None]
  - Spinal epidural haematoma [None]
  - Sensory loss [None]
  - Muscular weakness [None]
